FAERS Safety Report 7241201-7 (Version None)
Quarter: 2011Q1

REPORT INFORMATION
  Report Type: 
  Country: None (occurrence: None)
  Receive Date: 20110124
  Receipt Date: 20110118
  Transmission Date: 20110831
  Serious: Yes (Hospitalization, Disabling)
  Sender: FDA-Public Use
  Company Number: US-ROCHE-744418

PATIENT
  Sex: Female
  Weight: 34.9 kg

DRUGS (11)
  1. CAPECITABINE [Suspect]
     Route: 048
     Dates: end: 20101109
  2. RHODIOLA ROSEA [Concomitant]
  3. SLIPPERY ELM [Concomitant]
     Dosage: FREQ: 1/2 TEASPON 2X DAY.
  4. L-CARNITINE [Concomitant]
     Dosage: DRUG: CARNITINE (1.7 GM/TSP). FREQ: 1 TEASPON 2X DAY
  5. BIO C [Concomitant]
     Dosage: BIO C WITH FLAVANOIDS 1/2 2 X DAY.
  6. CEFTRIAXONE [Concomitant]
     Dates: start: 20101105
  7. BOSWELLIA [Concomitant]
  8. GLUTAMINE [Concomitant]
     Dosage: GLUTAMINE (3 GM/TSP) ( 4.8 GM/TSP) 1 TEASPOON 3X DAY.
  9. ZANTAC [Concomitant]
  10. CAPECITABINE [Suspect]
     Indication: BRAIN STEM GLIOMA
     Route: 048
     Dates: start: 20100713
  11. ARNICA [Concomitant]
     Dosage: DRUG: ARNICA 30 C PELLETS AWAY FROM FOOD.

REACTIONS (4)
  - HYPOXIA [None]
  - ASPIRATION [None]
  - TUMOUR NECROSIS [None]
  - DYSPNOEA [None]
